FAERS Safety Report 18901715 (Version 1)
Quarter: 2021Q1

REPORT INFORMATION
  Report Type: Spontaneous
  Country: FR (occurrence: FR)
  Receive Date: 20210217
  Receipt Date: 20210217
  Transmission Date: 20210420
  Serious: Yes (Other)
  Sender: FDA-Public Use
  Company Number: FR-ACCORD-217309

PATIENT
  Age: 32 Year
  Sex: Female

DRUGS (6)
  1. THERALENE [Concomitant]
     Active Substance: TRIMEPRAZINE
     Indication: PSYCHOTIC DISORDER
     Route: 048
     Dates: start: 20201121
  2. DIAZEPAM ARROW [Interacting]
     Active Substance: DIAZEPAM
     Indication: PSYCHOTIC DISORDER
     Dosage: STRENGTH: 10 MG, SCORED TABLET
     Route: 048
     Dates: start: 20201130, end: 20201204
  3. LOXAPAC [Interacting]
     Active Substance: LOXAPINE
     Indication: PSYCHOTIC DISORDER
     Route: 048
     Dates: start: 20201127, end: 20201204
  4. LEPTICUR [Interacting]
     Active Substance: TROPATEPINE HYDROCHLORIDE
     Indication: PSYCHOTIC DISORDER
     Route: 048
     Dates: start: 20201125, end: 20201204
  5. QUETIAPINE. [Suspect]
     Active Substance: QUETIAPINE
     Indication: PSYCHOTIC DISORDER
     Route: 048
     Dates: start: 20201130, end: 20201207
  6. LORMETAZEPAM ARROW [Concomitant]
     Active Substance: LORMETAZEPAM
     Indication: PSYCHOTIC DISORDER
     Route: 048
     Dates: start: 20201127

REACTIONS (2)
  - Drug interaction [Unknown]
  - Constipation [Recovered/Resolved]

NARRATIVE: CASE EVENT DATE: 20201203
